FAERS Safety Report 10543192 (Version 4)
Quarter: 2015Q1

REPORT INFORMATION
  Report Type: Spontaneous
  Country: US (occurrence: US)
  Receive Date: 20141027
  Receipt Date: 20150304
  Transmission Date: 20150720
  Serious: Yes (Other)
  Sender: FDA-Public Use
  Company Number: US-AMGEN-USASP2014082334

PATIENT
  Age: 12 Year
  Sex: Female
  Weight: 48.9 kg

DRUGS (2)
  1. ENBREL [Suspect]
     Active Substance: ETANERCEPT
     Indication: JUVENILE IDIOPATHIC ARTHRITIS
     Dosage: 20 MG, 2 TIMES/WK
     Route: 058
     Dates: start: 20100612, end: 20150226
  2. AUVI Q [Concomitant]
     Indication: HYPERSENSITIVITY
     Dosage: 0.3 MG/ML, AS NECESSARY

REACTIONS (14)
  - Depression [Unknown]
  - Vision blurred [Not Recovered/Not Resolved]
  - Loss of consciousness [Recovered/Resolved]
  - Migraine [Unknown]
  - Feeling jittery [Not Recovered/Not Resolved]
  - Visual impairment [Recovered/Resolved]
  - Presyncope [Not Recovered/Not Resolved]
  - Pallor [Recovered/Resolved]
  - Nausea [Recovered/Resolved]
  - Dizziness [Not Recovered/Not Resolved]
  - Flushing [Not Recovered/Not Resolved]
  - Headache [Unknown]
  - Feeling abnormal [Not Recovered/Not Resolved]
  - Fatigue [Not Recovered/Not Resolved]

NARRATIVE: CASE EVENT DATE: 2010
